FAERS Safety Report 10027889 (Version 2)
Quarter: 2014Q1

REPORT INFORMATION
  Report Type: Spontaneous
  Country: FR (occurrence: FR)
  Receive Date: 20140321
  Receipt Date: 20140321
  Transmission Date: 20141002
  Serious: Yes (Other)
  Sender: FDA-Public Use
  Company Number: FR-SA-THYM-1002841

PATIENT
  Age: 57 Year
  Sex: Female
  Weight: 59.7 kg

DRUGS (9)
  1. THYMOGLOBULINE [Suspect]
     Indication: BONE MARROW CONDITIONING REGIMEN
     Dosage: 225 MG, QD
     Route: 042
     Dates: start: 20100221, end: 20100225
  2. THYMOGLOBULINE [Suspect]
     Indication: BONE MARROW CONDITIONING REGIMEN
     Dosage: 147.5 MG, ONCE
     Route: 042
     Dates: start: 20110128, end: 20110128
  3. THYMOGLOBULINE [Suspect]
     Indication: BONE MARROW CONDITIONING REGIMEN
     Dosage: 3.5 MG/KG, QD
     Route: 042
     Dates: start: 20110205, end: 20110206
  4. ENDOXAN [Concomitant]
     Indication: BONE MARROW CONDITIONING REGIMEN
     Dosage: 490 MG, QD
     Dates: start: 20110203, end: 20110206
  5. DEXCHLORPHENIRAMINE MALEATE [Concomitant]
     Indication: BONE MARROW CONDITIONING REGIMEN
     Dosage: 10 MG, UNK
     Route: 042
     Dates: start: 20110128
  6. METHYLPREDNISOLONE SODIUM SUCCINATE [Concomitant]
     Indication: BONE MARROW CONDITIONING REGIMEN
     Dosage: 20 MG, TID
     Dates: start: 20110128
  7. SODIUM BICARBONATE [Concomitant]
     Dosage: 100 ML, QID
  8. URSODEOXYCHOLIC ACID [Concomitant]
     Dosage: 500 MG, BID
     Dates: start: 20110129
  9. FLUDARABINE PHOSPHATE [Concomitant]
     Indication: BONE MARROW CONDITIONING REGIMEN
     Dosage: 49 MG, QD
     Dates: start: 20110203, end: 20110206

REACTIONS (3)
  - Hepatocellular injury [Recovered/Resolved]
  - Alanine aminotransferase increased [Recovered/Resolved]
  - Aspartate aminotransferase increased [Recovered/Resolved]
